FAERS Safety Report 24965319 (Version 4)
Quarter: 2025Q4

REPORT INFORMATION
  Report Type: Report from Study
  Country: CO (occurrence: CO)
  Receive Date: 20250213
  Receipt Date: 20251009
  Transmission Date: 20260117
  Serious: Yes (Hospitalization, Other)
  Sender: UCB
  Company Number: CO-UCBSA-2025007878

PATIENT
  Sex: Female
  Weight: 154 kg

DRUGS (7)
  1. CERTOLIZUMAB PEGOL [Suspect]
     Active Substance: CERTOLIZUMAB PEGOL
     Indication: Ankylosing spondylitis
     Dosage: 400 MILLIGRAM, EV 30 DAYS
     Route: 058
     Dates: start: 20250129, end: 20250405
  2. CERTOLIZUMAB PEGOL [Suspect]
     Active Substance: CERTOLIZUMAB PEGOL
     Dosage: 400 MILLIGRAM, EV 30 DAYS
     Route: 058
     Dates: start: 20250729
  3. LEVOTHYROXINE [Concomitant]
     Active Substance: LEVOTHYROXINE
     Indication: Product used for unknown indication
     Dosage: 75 MCG EVERY 24 HOURS
     Dates: start: 20210101
  4. GESTAVIT [Concomitant]
     Indication: Product used for unknown indication
     Dosage: UNK
     Dates: start: 20240910
  5. CITRAGEL [Concomitant]
     Indication: Product used for unknown indication
     Dosage: UNK
  6. ETORICOXIB [Concomitant]
     Active Substance: ETORICOXIB
     Indication: Product used for unknown indication
     Dosage: 120 MG EVERY 24 HOURS
     Dates: start: 20231101, end: 20240910
  7. PROGESTERONE [Concomitant]
     Active Substance: PROGESTERONE
     Indication: Product used for unknown indication
     Dosage: 200 MG EVERY 12 HOURS
     Dates: start: 20241203, end: 20250211

REACTIONS (10)
  - Caesarean section [Recovered/Resolved]
  - Malaise [Not Recovered/Not Resolved]
  - High risk pregnancy [Recovered/Resolved]
  - Maternal exposure during pregnancy [Unknown]
  - Maternal exposure during breast feeding [Unknown]
  - Pyrexia [Recovered/Resolved]
  - Breast tenderness [Recovered/Resolved]
  - Pain [Recovered/Resolved]
  - Off label use [Unknown]
  - Intentional dose omission [Unknown]

NARRATIVE: CASE EVENT DATE: 20250101
